FAERS Safety Report 16415449 (Version 3)
Quarter: 2019Q3

REPORT INFORMATION
  Report Type: Spontaneous
  Country: US (occurrence: US)
  Receive Date: 20190611
  Receipt Date: 20190722
  Transmission Date: 20191004
  Serious: No
  Sender: FDA-Public Use
  Company Number: US-SA-2019SA152315

PATIENT
  Age: 81 Year
  Sex: Female

DRUGS (1)
  1. TOUJEO [Suspect]
     Active Substance: INSULIN GLARGINE
     Indication: TYPE 2 DIABETES MELLITUS
     Dosage: 50 U, EVERY PM
     Route: 065

REACTIONS (3)
  - Device issue [Unknown]
  - Rhinorrhoea [Not Recovered/Not Resolved]
  - Blood glucose decreased [Unknown]
